FAERS Safety Report 20016650 (Version 1)
Quarter: 2021Q4

REPORT INFORMATION
  Report Type: Spontaneous
  Country: US (occurrence: None)
  Receive Date: 20211104
  Receipt Date: 20211104
  Transmission Date: 20220303
  Serious: Yes (Hospitalization, Other)
  Sender: FDA-Public Use
  Company Number: None

PATIENT
  Age: 80 Year
  Sex: Female
  Weight: 96 kg

DRUGS (1)
  1. PYRIDOSTIGMINE BROMIDE [Suspect]
     Active Substance: PYRIDOSTIGMINE BROMIDE
     Indication: Myasthenia gravis
     Dosage: FREQUENCY : TWICE A DAY;?
     Route: 048
     Dates: start: 20211014

REACTIONS (2)
  - Atrioventricular block complete [None]
  - Acute respiratory failure [None]

NARRATIVE: CASE EVENT DATE: 20211019
